FAERS Safety Report 7469072-4 (Version None)
Quarter: 2011Q2

REPORT INFORMATION
  Report Type: 
  Country: None (occurrence: None)
  Receive Date: 20110510
  Receipt Date: 20110427
  Transmission Date: 20111010
  Serious: Yes (Life-Threatening, Hospitalization, Other)
  Sender: FDA-Public Use
  Company Number: GB-RANBAXY-2007RR-08970

PATIENT

DRUGS (9)
  1. LORAZEPAM [Suspect]
     Dosage: 1 MG, BID
  2. LORAZEPAM [Suspect]
     Indication: ANXIETY
     Dosage: 1.5 MG, QD
  3. LORAZEPAM [Suspect]
     Dosage: 6 MG, UNK
  4. ZOPICLONE [Suspect]
     Indication: DRUG DEPENDENCE
     Dosage: 7.5 MG, QD
  5. ALPRAZOLAM [Suspect]
     Indication: DEPRESSED MOOD
  6. ZOPICLONE [Concomitant]
     Dosage: 7.5 MG, QD
  7. DIAZEPAM [Suspect]
     Indication: DRUG DEPENDENCE
     Dosage: 7 MG, BID
  8. TEMAZ [Suspect]
     Indication: ANXIETY
  9. FLUOXETINE [Concomitant]
     Indication: DEPRESSION
     Dosage: 20 MG, QD

REACTIONS (9)
  - SELF INJURIOUS BEHAVIOUR [None]
  - AGITATION [None]
  - ANXIETY [None]
  - PARAESTHESIA [None]
  - SUICIDE ATTEMPT [None]
  - DRUG DEPENDENCE [None]
  - FEAR [None]
  - INTENTIONAL OVERDOSE [None]
  - WITHDRAWAL SYNDROME [None]
